FAERS Safety Report 7681426-X (Version None)
Quarter: 2011Q3

REPORT INFORMATION
  Report Type: 
  Country: None (occurrence: None)
  Receive Date: 20110812
  Receipt Date: 20110803
  Transmission Date: 20111222
  Serious: Yes (Disabling)
  Sender: FDA-Public Use
  Company Number: US-ROCHE-477879

PATIENT
  Sex: Female

DRUGS (10)
  1. PEGASYS [Suspect]
     Route: 065
     Dates: start: 20070131
  2. RIBAVIRIN [Suspect]
     Indication: HEPATITIS C
     Route: 065
     Dates: start: 20061031, end: 20070126
  3. CYMBALTA [Concomitant]
     Indication: PROPHYLAXIS
     Dates: start: 20061001, end: 20070126
  4. TRANQUILIZERS [Concomitant]
  5. SLEEPING PILL NOS [Concomitant]
  6. XANAX [Concomitant]
  7. HEPATITIS A VACCINE [Concomitant]
     Indication: PROPHYLAXIS
     Dates: start: 20061101
  8. HEPATITIS B VACCINE [Concomitant]
     Indication: PROPHYLAXIS
     Dates: start: 20061101
  9. PEGASYS [Suspect]
     Indication: HEPATITIS C
     Route: 065
     Dates: start: 20061031, end: 20070126
  10. RIBAVIRIN [Suspect]
     Route: 065
     Dates: start: 20070131

REACTIONS (27)
  - DRUG INEFFECTIVE [None]
  - NECK PAIN [None]
  - ABDOMINAL PAIN UPPER [None]
  - DIZZINESS [None]
  - PSYCHOMOTOR HYPERACTIVITY [None]
  - DYSPNOEA [None]
  - PAINFUL DEFAECATION [None]
  - HEPATITIS C [None]
  - ALCOHOLISM [None]
  - BACK PAIN [None]
  - OSTEOARTHRITIS [None]
  - MEMORY IMPAIRMENT [None]
  - DIARRHOEA [None]
  - FEELING ABNORMAL [None]
  - LEGAL PROBLEM [None]
  - ALOPECIA [None]
  - INJECTION SITE RASH [None]
  - RASH [None]
  - DEHYDRATION [None]
  - HYPERTENSION [None]
  - CONFUSIONAL STATE [None]
  - DYSPNOEA EXERTIONAL [None]
  - ARTHRALGIA [None]
  - WEIGHT INCREASED [None]
  - VIRAL LOAD INCREASED [None]
  - INTERVERTEBRAL DISC DISORDER [None]
  - NAUSEA [None]
